FAERS Safety Report 6553781-5 (Version None)
Quarter: 2010Q1

REPORT INFORMATION
  Report Type: 
  Country: None (occurrence: None)
  Receive Date: 20100127
  Receipt Date: 20100121
  Transmission Date: 20100710
  Serious: Yes (Hospitalization)
  Sender: FDA-Public Use
  Company Number: CN-ASTRAZENECA-2010SE02979

PATIENT
  Age: 54 Year
  Sex: Male

DRUGS (4)
  1. IRESSA [Suspect]
     Indication: NON-SMALL CELL LUNG CANCER
     Route: 048
     Dates: start: 20060421, end: 20060524
  2. GEMZAR [Concomitant]
     Indication: CHEMOTHERAPY
  3. CARBOPLATIN [Concomitant]
     Indication: CHEMOTHERAPY
  4. TAXOTERE WITH DDP [Concomitant]
     Indication: CHEMOTHERAPY

REACTIONS (1)
  - ILEUS PARALYTIC [None]
